FAERS Safety Report 24771849 (Version 1)
Quarter: 2024Q4

REPORT INFORMATION
  Report Type: Spontaneous
  Country: US (occurrence: None)
  Receive Date: 20241224
  Receipt Date: 20241224
  Transmission Date: 20250115
  Serious: No
  Sender: Public
  Company Number: None

PATIENT
  Age: 48 Year
  Sex: Female

DRUGS (1)
  1. XPHOZAH [Suspect]
     Active Substance: TENAPANOR HYDROCHLORIDE
     Dosage: FREQUENCY : TWICE A DAY;?
     Route: 048

REACTIONS (2)
  - Diarrhoea [None]
  - Intentional dose omission [None]

NARRATIVE: CASE EVENT DATE: 20241006
